FAERS Safety Report 6667447-4 (Version None)
Quarter: 2010Q1

REPORT INFORMATION
  Report Type: 
  Country: None (occurrence: None)
  Receive Date: 20100331
  Receipt Date: 20100323
  Transmission Date: 20100710
  Serious: No
  Sender: FDA-Public Use
  Company Number: 009049

PATIENT
  Age: 80 Year
  Sex: Female
  Weight: 50 kg

DRUGS (3)
  1. PLETAL [Suspect]
     Indication: INTERMITTENT CLAUDICATION
     Dosage: 100 MG, BID, ORAL
     Route: 048
     Dates: start: 20100121, end: 20100202
  2. PREGABALIN [Concomitant]
  3. METFORMIN HCL [Concomitant]

REACTIONS (2)
  - FAECAL INCONTINENCE [None]
  - VISUAL ACUITY REDUCED [None]
